FAERS Safety Report 9670481 (Version 1)
Quarter: 2013Q4

REPORT INFORMATION
  Report Type: Spontaneous
  Country: FR (occurrence: FR)
  Receive Date: 20131106
  Receipt Date: 20131106
  Transmission Date: 20140711
  Serious: Yes (Life-Threatening, Hospitalization, Other)
  Sender: FDA-Public Use
  Company Number: FR-JNJFOC-20131100747

PATIENT
  Age: 34 Year
  Sex: Male

DRUGS (4)
  1. IBUPROFEN [Suspect]
     Indication: PRODUCT USED FOR UNKNOWN INDICATION
     Route: 048
  2. ENBREL [Suspect]
     Indication: ANKYLOSING SPONDYLITIS
     Route: 058
     Dates: start: 201101, end: 201305
  3. PREDNISONE [Suspect]
     Indication: ANKYLOSING SPONDYLITIS
     Route: 048
     Dates: start: 201101, end: 20130508
  4. HUMIRA [Suspect]
     Indication: ANKYLOSING SPONDYLITIS
     Route: 065
     Dates: end: 201101

REACTIONS (2)
  - Colonic abscess [Recovered/Resolved with Sequelae]
  - Diverticular perforation [Recovered/Resolved with Sequelae]
